FAERS Safety Report 6915407-8 (Version None)
Quarter: 2010Q3

REPORT INFORMATION
  Report Type: 
  Country: None (occurrence: None)
  Receive Date: 20100809
  Receipt Date: 20100325
  Transmission Date: 20110219
  Serious: No
  Sender: FDA-Public Use
  Company Number: US-ABBOTT-10P-163-0630035-00

PATIENT
  Age: 65 Year
  Sex: Female

DRUGS (4)
  1. DEPAKOTE ER [Suspect]
     Indication: BIPOLAR I DISORDER
     Route: 048
  2. DEPAKOTE ER [Suspect]
     Route: 048
     Dates: start: 19980101, end: 20020101
  3. ALPRAZOLAM [Concomitant]
     Indication: ANXIETY
  4. ACETAMINOPHEN [Concomitant]
     Indication: OSTEOARTHRITIS
     Route: 048

REACTIONS (2)
  - EAR DISORDER [None]
  - TINNITUS [None]
